FAERS Safety Report 8007660-7 (Version None)
Quarter: 2011Q4

REPORT INFORMATION
  Report Type: 
  Country: None (occurrence: None)
  Receive Date: 20111227
  Receipt Date: 20111222
  Transmission Date: 20120403
  Serious: Yes (Other)
  Sender: FDA-Public Use
  Company Number: JP-BRACCO-005530

PATIENT
  Age: 39 Year
  Sex: Male

DRUGS (1)
  1. IOPAMIDOL [Suspect]
     Indication: COMPUTERISED TOMOGRAM
     Dosage: TEST INJECTION
     Route: 042
     Dates: start: 20111212, end: 20111212

REACTIONS (3)
  - PALLOR [None]
  - PHARYNGEAL OEDEMA [None]
  - DYSPNOEA [None]
